FAERS Safety Report 16266003 (Version 3)
Quarter: 2019Q2

REPORT INFORMATION
  Report Type: Spontaneous
  Country: JP (occurrence: JP)
  Receive Date: 20190502
  Receipt Date: 20190529
  Transmission Date: 20190711
  Serious: Yes (Hospitalization)
  Sender: FDA-Public Use
  Company Number: JP-JNJFOC-20190443361

PATIENT
  Age: 72 Year
  Sex: Male
  Weight: 65.3 kg

DRUGS (6)
  1. ZYTIGA [Suspect]
     Active Substance: ABIRATERONE ACETATE
     Indication: PROSTATE CANCER
     Route: 048
     Dates: start: 20180803, end: 20190427
  2. PREDONINE [Concomitant]
     Active Substance: PREDNISOLONE
     Indication: PROSTATE CANCER
     Route: 048
     Dates: start: 20180803, end: 20190427
  3. PREDONINE [Concomitant]
     Active Substance: PREDNISOLONE
     Indication: HEREDITARY NON-POLYPOSIS COLORECTAL CANCER SYNDROME
     Route: 048
     Dates: start: 20180803, end: 20190427
  4. ZYTIGA [Suspect]
     Active Substance: ABIRATERONE ACETATE
     Indication: HEREDITARY NON-POLYPOSIS COLORECTAL CANCER SYNDROME
     Route: 048
     Dates: start: 20180803, end: 20190427
  5. PREDONINE [Concomitant]
     Active Substance: PREDNISOLONE
     Indication: PROSTATE CANCER
     Route: 048
     Dates: start: 20190430
  6. PREDONINE [Concomitant]
     Active Substance: PREDNISOLONE
     Indication: HEREDITARY NON-POLYPOSIS COLORECTAL CANCER SYNDROME
     Route: 048
     Dates: start: 20190430

REACTIONS (1)
  - Liver disorder [Not Recovered/Not Resolved]

NARRATIVE: CASE EVENT DATE: 20190426
